FAERS Safety Report 6208939-1 (Version None)
Quarter: 2009Q2

REPORT INFORMATION
  Report Type: 
  Country: None (occurrence: None)
  Receive Date: 20090529
  Receipt Date: 20090518
  Transmission Date: 20091009
  Serious: Yes (Hospitalization)
  Sender: FDA-Public Use
  Company Number: IE-MERCK-0811GBR00101

PATIENT
  Age: 60 Year
  Sex: Male

DRUGS (4)
  1. JANUVIA [Suspect]
     Route: 048
     Dates: start: 20080701, end: 20081117
  2. METFORMIN [Concomitant]
     Route: 065
  3. ROSUVASTATIN CALCIUM [Concomitant]
     Route: 065
     Dates: end: 20081117
  4. GLICLAZIDE [Concomitant]
     Route: 065

REACTIONS (3)
  - ADVERSE DRUG REACTION [None]
  - CARDIAC FAILURE CONGESTIVE [None]
  - LIVER FUNCTION TEST ABNORMAL [None]
